FAERS Safety Report 12537871 (Version 1)
Quarter: 2016Q3

REPORT INFORMATION
  Report Type: Spontaneous
  Country: US (occurrence: GB)
  Receive Date: 20160707
  Receipt Date: 20160707
  Transmission Date: 20161109
  Serious: Yes (Hospitalization, Other)
  Sender: FDA-Public Use
  Company Number: GB-FRI-1000085835

PATIENT
  Age: 57 Year
  Sex: Male

DRUGS (5)
  1. ASENAPINE [Suspect]
     Active Substance: ASENAPINE
     Indication: TREMOR
     Dosage: 20 MG
     Route: 060
     Dates: start: 2013, end: 201601
  2. ASENAPINE [Suspect]
     Active Substance: ASENAPINE
     Dosage: 20 MG
     Route: 060
     Dates: start: 2016
  3. DEPAKOTE [Concomitant]
     Active Substance: DIVALPROEX SODIUM
  4. HALDOL [Concomitant]
     Active Substance: HALOPERIDOL
  5. STATIN (UNSPECIFIED) [Concomitant]
     Active Substance: UNSPECIFIED INGREDIENT

REACTIONS (9)
  - Drug withdrawal syndrome [Unknown]
  - Cellulitis [Recovered/Resolved]
  - Somnolence [Unknown]
  - Joint swelling [Recovered/Resolved]
  - Product use issue [Not Recovered/Not Resolved]
  - Mania [Unknown]
  - Snoring [Unknown]
  - Feeling abnormal [Unknown]
  - Dysarthria [Unknown]

NARRATIVE: CASE EVENT DATE: 2013
